FAERS Safety Report 6103017-4 (Version None)
Quarter: 2009Q1

REPORT INFORMATION
  Report Type: 
  Country: None (occurrence: None)
  Receive Date: 20090305
  Receipt Date: 20090227
  Transmission Date: 20090719
  Serious: Yes (Hospitalization)
  Sender: FDA-Public Use
  Company Number: PHHO2009US02931

PATIENT
  Sex: Female
  Weight: 84.5 kg

DRUGS (3)
  1. ALISKIREN ALI+TAB [Suspect]
     Indication: ESSENTIAL HYPERTENSION
     Dosage: 300 MG, QD
     Route: 048
     Dates: start: 20080815, end: 20090227
  2. HYDROCHLOROTHIAZIDE [Suspect]
     Indication: ESSENTIAL HYPERTENSION
     Dosage: 25 MG, QD
     Route: 048
     Dates: start: 20080815, end: 20090227
  3. AMLODIPINE [Suspect]
     Indication: ESSENTIAL HYPERTENSION
     Dosage: 5 MG, BID
     Route: 048
     Dates: start: 20080815, end: 20090227

REACTIONS (5)
  - CHEST PAIN [None]
  - HEADACHE [None]
  - PROTEIN TOTAL ABNORMAL [None]
  - RENAL FAILURE [None]
  - SINUSITIS [None]
